FAERS Safety Report 4379095-X (Version None)
Quarter: 2004Q2

REPORT INFORMATION
  Report Type: 
  Country: None (occurrence: None)
  Receive Date: 20040610
  Receipt Date: 20040518
  Transmission Date: 20050107
  Serious: Yes (Hospitalization)
  Sender: FDA-Public Use
  Company Number: 2004AC00117

PATIENT
  Age: 65 Year
  Sex: Female

DRUGS (5)
  1. OMEPRAZOLE [Suspect]
     Indication: PEPTIC ULCER
     Dosage: 20 MG BID
  2. CLARITHROMYCIN [Suspect]
     Indication: PEPTIC ULCER
     Dosage: 500 MG BID
  3. DIURETICS [Concomitant]
  4. LISINOPRIL AND HYDROCHLOROTHIAZIDE [Concomitant]
  5. TIMOPTIC [Concomitant]

REACTIONS (10)
  - ABNORMAL BEHAVIOUR [None]
  - AGITATION [None]
  - ELEVATED MOOD [None]
  - ENERGY INCREASED [None]
  - FLIGHT OF IDEAS [None]
  - IRRITABILITY [None]
  - LOGORRHOEA [None]
  - MANIA [None]
  - PSYCHOMOTOR AGITATION [None]
  - SLEEP DISORDER [None]
